FAERS Safety Report 24991381 (Version 2)
Quarter: 2025Q3

REPORT INFORMATION
  Report Type: Spontaneous
  Country: GB (occurrence: GB)
  Receive Date: 20250220
  Receipt Date: 20250816
  Transmission Date: 20251021
  Serious: Yes (Other)
  Sender: ALEXION PHARMACEUTICALS
  Company Number: GB-AstraZeneca-2012SE20404

PATIENT
  Age: 60 Year
  Sex: Male

DRUGS (3)
  1. ESOMEPRAZOLE SODIUM [Suspect]
     Active Substance: ESOMEPRAZOLE SODIUM
  2. LOSEC [Suspect]
     Active Substance: OMEPRAZOLE
     Dosage: 20 MILLIGRAM, QD
  3. LOSEC [Suspect]
     Active Substance: OMEPRAZOLE

REACTIONS (1)
  - Deafness transitory [Unknown]
